FAERS Safety Report 9415077 (Version 1)
Quarter: 2013Q3

REPORT INFORMATION
  Report Type: Report from Study
  Country: US (occurrence: US)
  Receive Date: 20130723
  Receipt Date: 20130723
  Transmission Date: 20140515
  Serious: Yes (Hospitalization)
  Sender: FDA-Public Use
  Company Number: PHEH2013US013202

PATIENT
  Age: 44 Year
  Sex: Female
  Weight: 70.3 kg

DRUGS (12)
  1. GILENYA [Suspect]
     Indication: MULTIPLE SCLEROSIS
     Dosage: 0.5 MG, QD
     Route: 048
     Dates: start: 20130528
  2. GILENYA [Suspect]
     Dosage: 0.5 MG, QD
     Route: 048
     Dates: start: 20130613, end: 20130705
  3. TREXIMET [Concomitant]
  4. MIGRANAL [Concomitant]
  5. LIORESAL [Concomitant]
     Dosage: 20 MG DAILY
     Route: 048
  6. ADDERALL [Concomitant]
     Dosage: 30 MG, BID
     Route: 048
  7. DIAZEPAM [Concomitant]
     Dosage: 5 MG, PRN
     Route: 048
  8. SYNTHROID [Concomitant]
     Dosage: 0.125 MG, DAILY
  9. GABAPENTIN [Concomitant]
     Dosage: 100 MG, DAILY
  10. TRAMADOL [Concomitant]
     Dosage: 50 MG, Q6H
  11. MAXALT [Concomitant]
     Dosage: PRN
  12. PRILOSEC [Suspect]
     Dosage: 20 MG DAILY
     Route: 048

REACTIONS (29)
  - Confusional state [Not Recovered/Not Resolved]
  - Disorientation [Not Recovered/Not Resolved]
  - Syncope [Not Recovered/Not Resolved]
  - Abdominal distension [Recovered/Resolved]
  - Abdominal pain [Recovered/Resolved]
  - Urine ketone body present [Unknown]
  - Facial paresis [Unknown]
  - Stress [Unknown]
  - Memory impairment [Unknown]
  - Upper motor neurone lesion [Unknown]
  - Sleep disorder [Unknown]
  - Faeces discoloured [Recovering/Resolving]
  - Granulocyte count increased [Unknown]
  - Malaise [Unknown]
  - Constipation [Unknown]
  - Abdominal discomfort [Recovering/Resolving]
  - Fatigue [Unknown]
  - Anxiety [Unknown]
  - Muscular weakness [Unknown]
  - Fall [Unknown]
  - Vertigo [Unknown]
  - Nausea [Unknown]
  - Back pain [Unknown]
  - Headache [Unknown]
  - Urinary tract infection [Unknown]
  - Dizziness [Unknown]
  - White blood cell count decreased [Unknown]
  - Lymphocyte count decreased [Unknown]
  - Multiple sclerosis relapse [Unknown]
